FAERS Safety Report 9175131 (Version 2)
Quarter: 2013Q2

REPORT INFORMATION
  Report Type: Report from Study
  Country: JP (occurrence: JP)
  Receive Date: 20130320
  Receipt Date: 20130424
  Transmission Date: 20140414
  Serious: Yes (Death)
  Sender: FDA-Public Use
  Company Number: JP-BRISTOL-MYERS SQUIBB COMPANY-14257745

PATIENT
  Age: 51 Year
  Sex: Male

DRUGS (7)
  1. BARACLUDE [Suspect]
     Indication: HEPATITIS B
     Route: 048
     Dates: start: 20080227, end: 20080316
  2. DIART [Concomitant]
     Route: 048
     Dates: start: 20060118, end: 20080316
  3. LASIX [Concomitant]
     Route: 048
     Dates: start: 20070705, end: 20080316
  4. ALDACTONE [Concomitant]
     Route: 048
     Dates: start: 20070905, end: 20080316
  5. URSO [Concomitant]
     Route: 048
     Dates: start: 20060118, end: 20080316
  6. LIVACT [Concomitant]
     Route: 048
     Dates: start: 20060301, end: 20080316
  7. MYSLEE [Concomitant]
     Route: 048
     Dates: start: 20080310, end: 20080316

REACTIONS (3)
  - Hepatic cirrhosis [Fatal]
  - Alanine aminotransferase increased [Fatal]
  - Renal failure [Fatal]
